FAERS Safety Report 6085627-6 (Version None)
Quarter: 2009Q1

REPORT INFORMATION
  Report Type: 
  Country: None (occurrence: None)
  Receive Date: 20090217
  Receipt Date: 20090217
  Transmission Date: 20090719
  Serious: No
  Sender: FDA-Public Use
  Company Number: None

PATIENT
  Sex: Female
  Weight: 90.7194 kg

DRUGS (2)
  1. DECLOMYCIN [Suspect]
     Indication: BRONCHITIS
     Dates: start: 19850101, end: 19850101
  2. DECLOMYCIN [Suspect]
     Indication: PHARYNGITIS STREPTOCOCCAL
     Dates: start: 19850101, end: 19850101

REACTIONS (2)
  - TOOTH DISCOLOURATION [None]
  - TOOTH DISORDER [None]
